FAERS Safety Report 13907189 (Version 2)
Quarter: 2017Q3

REPORT INFORMATION
  Report Type: Spontaneous
  Country: US (occurrence: US)
  Receive Date: 20170825
  Receipt Date: 20170913
  Transmission Date: 20171127
  Serious: No
  Sender: FDA-Public Use
  Company Number: US-ELI_LILLY_AND_COMPANY-US201708003189

PATIENT
  Age: 32 Year
  Sex: Female
  Weight: 72 kg

DRUGS (6)
  1. ADCIRCA [Suspect]
     Active Substance: TADALAFIL
     Indication: PRODUCT USED FOR UNKNOWN INDICATION
     Dosage: UNK, UNKNOWN
     Route: 065
     Dates: start: 20170721
  2. TYVASO [Suspect]
     Active Substance: TREPROSTINIL
     Indication: PULMONARY ARTERIAL HYPERTENSION
     Dosage: 3 DF, QID (3 TO 9 BREATHS)
     Route: 055
     Dates: start: 20170731
  3. TYVASO [Suspect]
     Active Substance: TREPROSTINIL
     Dosage: 3 DF, QID (3 TO 9 BREATHS)
     Route: 055
  4. AMLODIPINE [Concomitant]
     Active Substance: AMLODIPINE BESYLATE
  5. ZOFRAN [Concomitant]
     Active Substance: ONDANSETRON HYDROCHLORIDE
     Indication: PRODUCT USED FOR UNKNOWN INDICATION
     Dosage: UNK
  6. OPSUMIT [Concomitant]
     Active Substance: MACITENTAN
     Dosage: UNK, UNKNOWN
     Route: 065
     Dates: start: 20170802

REACTIONS (10)
  - Nausea [Unknown]
  - Nausea [Unknown]
  - Malaise [Unknown]
  - Pain [Unknown]
  - Burning sensation [Unknown]
  - Oedema peripheral [Unknown]
  - Vomiting [Unknown]
  - Headache [Recovered/Resolved]
  - Vomiting [Unknown]
  - Flushing [Unknown]

NARRATIVE: CASE EVENT DATE: 20170721
